FAERS Safety Report 9605277 (Version 1)
Quarter: 2013Q4

REPORT INFORMATION
  Report Type: Spontaneous
  Country: FR (occurrence: FR)
  Receive Date: 20131008
  Receipt Date: 20131008
  Transmission Date: 20140711
  Serious: Yes (Disabling)
  Sender: FDA-Public Use
  Company Number: FR-B.I. PHARMACEUTICALS,INC./RIDGEFIELD-2013-FF-02427FF

PATIENT
  Age: 51 Year
  Sex: Female

DRUGS (2)
  1. VIRAMUNE [Suspect]
     Indication: HIV INFECTION
     Dosage: 400 MG
     Route: 048
     Dates: start: 2008
  2. TRUVADA [Concomitant]
     Dosage: 200MG/245MG
     Route: 048
     Dates: start: 2008

REACTIONS (3)
  - Tracheitis [Not Recovered/Not Resolved]
  - Cough [Not Recovered/Not Resolved]
  - Acne [Not Recovered/Not Resolved]
